FAERS Safety Report 22738770 (Version 6)
Quarter: 2024Q2

REPORT INFORMATION
  Report Type: Spontaneous
  Country: BR (occurrence: BR)
  Receive Date: 20230721
  Receipt Date: 20240516
  Transmission Date: 20240716
  Serious: Yes (Other)
  Sender: FDA-Public Use
  Company Number: BR-SA-SAC20230720001091

PATIENT
  Age: 25 Year
  Sex: Female
  Weight: 46 kg

DRUGS (5)
  1. SABRIL [Suspect]
     Active Substance: VIGABATRIN
     Indication: Epilepsy
     Dosage: 500 MG, TID
     Route: 048
     Dates: start: 20230703
  2. SABRIL [Suspect]
     Active Substance: VIGABATRIN
     Indication: Intellectual disability
     Route: 065
  3. TOPIRAMATE [Concomitant]
     Active Substance: TOPIRAMATE
     Indication: Epilepsy
     Dosage: 1 DF, BID (1 IN THE MORNING AND 1 AT NIGHT)
     Route: 048
     Dates: start: 2013
  4. LAMOTRIGINE [Concomitant]
     Active Substance: LAMOTRIGINE
     Indication: Epilepsy
     Dosage: 100 MG, TID
     Route: 048
     Dates: start: 2013
  5. NITRAZEPAM [Concomitant]
     Active Substance: NITRAZEPAM
     Indication: Epilepsy
     Dosage: 5 MG, TID
     Route: 048

REACTIONS (21)
  - Seizure [Unknown]
  - Intentional product misuse [Unknown]
  - Epilepsy [Unknown]
  - Mouth haemorrhage [Unknown]
  - Stubbornness [Unknown]
  - Sluggishness [Unknown]
  - Nasopharyngitis [Unknown]
  - Enuresis [Unknown]
  - Anxiety [Unknown]
  - Increased appetite [Unknown]
  - Blister [Unknown]
  - General physical health deterioration [Unknown]
  - Drooling [Recovered/Resolved]
  - Dysstasia [Unknown]
  - Insomnia [Not Recovered/Not Resolved]
  - Aggression [Unknown]
  - Agitation [Not Recovered/Not Resolved]
  - Headache [Unknown]
  - Tremor [Unknown]
  - Poor quality product administered [Unknown]
  - Product use in unapproved indication [Unknown]

NARRATIVE: CASE EVENT DATE: 20230101
